FAERS Safety Report 15203523 (Version 12)
Quarter: 2019Q4

REPORT INFORMATION
  Report Type: Other
  Country: CA (occurrence: CA)
  Receive Date: 20180726
  Receipt Date: 20191223
  Transmission Date: 20200122
  Serious: Yes (Other)
  Sender: FDA-Public Use
  Company Number: CA-PFIZER INC-2018300398

PATIENT

DRUGS (28)
  1. HYDROMORPHONE HYDROCHLORIDE. [Suspect]
     Active Substance: HYDROMORPHONE HYDROCHLORIDE
     Dosage: 12 MG, Q3HR
     Route: 064
  2. STEMETIL [Suspect]
     Active Substance: PROCHLORPERAZINE
     Dosage: UNK
     Route: 064
  3. PANTOPRAZOLE [Suspect]
     Active Substance: PANTOPRAZOLE
     Dosage: UNK
     Route: 064
  4. HYDROMORPHONE HYDROCHLORIDE. [Suspect]
     Active Substance: HYDROMORPHONE HYDROCHLORIDE
     Dosage: 8 MG, Q8HR
     Route: 064
  5. AMITRIPTYLINE [Suspect]
     Active Substance: AMITRIPTYLINE
     Dosage: 25 MILLIGRAM
     Route: 064
  6. HYDROMORPHONE HYDROCHLORIDE. [Suspect]
     Active Substance: HYDROMORPHONE HYDROCHLORIDE
     Indication: POST-TRAUMATIC PAIN
     Dosage: 8 MG, 3X/DAY (EVERY 8 HOURS)
     Route: 064
  7. GRAVOL [Suspect]
     Active Substance: DIMENHYDRINATE
     Dosage: UNK
     Route: 064
  8. GRAVOL [Suspect]
     Active Substance: DIMENHYDRINATE
     Dosage: UNK
     Route: 064
  9. ONDANSETRON [Suspect]
     Active Substance: ONDANSETRON
     Dosage: UNK
     Route: 064
  10. LORAZEPAM. [Suspect]
     Active Substance: LORAZEPAM
     Dosage: 0.5 MG, 1X/DAY (AT BEDTIME)
     Route: 064
  11. LORAZEPAM. [Suspect]
     Active Substance: LORAZEPAM
     Dosage: 0.5 MILLIGRAM, QD
     Route: 064
  12. ENOXAPARIN [Suspect]
     Active Substance: ENOXAPARIN
     Dosage: UNK
     Route: 064
  13. FENTANYL. [Suspect]
     Active Substance: FENTANYL
     Indication: POST-TRAUMATIC PAIN
     Dosage: 100 UG, CYCLIC EVERY 72 HOURS (Q72H)
     Route: 064
  14. AMITRIPTYLINE [Suspect]
     Active Substance: AMITRIPTYLINE
     Dosage: 25 MG, 1X/DAY (AT BEDTIME)
     Route: 064
  15. HYDROMORPH CONTIN [Suspect]
     Active Substance: HYDROMORPHONE
     Indication: POST-TRAUMATIC PAIN
     Dosage: 24 MG, 3X/DAY
     Route: 064
  16. STEMETIL [Suspect]
     Active Substance: PROCHLORPERAZINE
     Dosage: UNK
     Route: 064
  17. PANTOPRAZOLE [Suspect]
     Active Substance: PANTOPRAZOLE
     Dosage: UNK
     Route: 064
  18. ONDANSETRON [Suspect]
     Active Substance: ONDANSETRON
     Dosage: UNK
     Route: 064
  19. HYDROMORPHONE HYDROCHLORIDE. [Suspect]
     Active Substance: HYDROMORPHONE HYDROCHLORIDE
     Dosage: 8 MG, Q4HR
     Route: 064
  20. ENOXAPARIN [Suspect]
     Active Substance: ENOXAPARIN
     Dosage: UNK
     Route: 064
  21. HYDROMORPH CONTIN [Suspect]
     Active Substance: HYDROMORPHONE
     Dosage: 24 MILLIGRAM, TID
     Route: 064
  22. GRAVOL [Suspect]
     Active Substance: DIMENHYDRINATE
     Dosage: UNK
     Route: 064
  23. STEMETIL [Suspect]
     Active Substance: PROCHLORPERAZINE
     Dosage: UNK
     Route: 064
  24. ONDANSETRON [Suspect]
     Active Substance: ONDANSETRON
     Dosage: UNK
     Route: 064
  25. FENTANYL. [Suspect]
     Active Substance: FENTANYL
     Dosage: 125 MICROGRAM
     Route: 064
  26. HYDROMORPHONE HYDROCHLORIDE. [Suspect]
     Active Substance: HYDROMORPHONE HYDROCHLORIDE
     Dosage: 8 MG, AS NEEDED
     Route: 064
  27. FENTANYL. [Suspect]
     Active Substance: FENTANYL
     Dosage: 125 UG, CYCLIC EVERY 72 HOURS (Q72H)
     Route: 064
  28. HYDROMORPH CONTIN [Suspect]
     Active Substance: HYDROMORPHONE
     Dosage: 24 MG, 3X/DAY (EVERY 8 HOURS)
     Route: 064

REACTIONS (3)
  - Maternal exposure during pregnancy [Recovered/Resolved]
  - Premature baby [Recovered/Resolved]
  - Pulmonary embolism [Recovered/Resolved]
